FAERS Safety Report 9391534 (Version 1)
Quarter: 2013Q3

REPORT INFORMATION
  Report Type: Other
  Country: GB (occurrence: GB)
  Receive Date: 20130709
  Receipt Date: 20130709
  Transmission Date: 20140515
  Serious: Yes (Hospitalization, Other)
  Sender: FDA-Public Use
  Company Number: GB-TARO PHARMACEUTICALS U.S.A., INC-2013SUN00913

PATIENT
  Age: 73 Year
  Sex: Male
  Weight: 80 kg

DRUGS (13)
  1. WARFARIN [Suspect]
     Indication: PRODUCT USED FOR UNKNOWN INDICATION
     Dosage: UNK
     Route: 065
  2. INLYTA [Interacting]
     Indication: METASTATIC RENAL CELL CARCINOMA
     Dosage: 3 MG, BID,
     Route: 048
     Dates: start: 20130416
  3. INLYTA [Interacting]
     Dosage: 3 MG, BID
     Route: 048
  4. ALLOPURINOL [Concomitant]
     Dosage: UNK
     Dates: start: 1980
  5. ATENOLOL [Concomitant]
     Indication: BLOOD PRESSURE
     Dosage: UNK
     Route: 048
     Dates: start: 201305
  6. DIGOXIN [Concomitant]
     Indication: ARRHYTHMIA
     Dosage: UNK
     Route: 048
     Dates: start: 201305
  7. DOXAZOSIN [Concomitant]
     Indication: ARRHYTHMIA
     Dosage: UNK
     Route: 048
     Dates: start: 2010
  8. DOXAZOSIN [Concomitant]
     Indication: BLOOD PRESSURE
     Dosage: UNK
     Route: 048
     Dates: start: 201305
  9. IRBESARTAN [Concomitant]
     Indication: BLOOD PRESSURE
     Dosage: 300 MG, UNK
     Route: 048
     Dates: start: 2009
  10. IRBESARTAN [Concomitant]
     Indication: ARRHYTHMIA
  11. OMEPRAZOLE [Concomitant]
     Indication: DYSPEPSIA
     Dosage: 20 MG, UNK
  12. TINZAPARIN SODIUM [Concomitant]
  13. THYROXINE [Concomitant]
     Dosage: UNK
     Dates: start: 1980

REACTIONS (11)
  - Drug interaction [Recovered/Resolved]
  - International normalised ratio abnormal [Recovered/Resolved]
  - Arrhythmia [Recovered/Resolved]
  - Balance disorder [Unknown]
  - Hepatic enzyme increased [Recovered/Resolved]
  - Jaundice [Recovered/Resolved]
  - Muscle atrophy [Unknown]
  - Nail disorder [Unknown]
  - Pneumonitis [Recovering/Resolving]
  - Hyperhidrosis [Unknown]
  - Weight decreased [Unknown]
